FAERS Safety Report 5790415-1 (Version None)
Quarter: 2008Q2

REPORT INFORMATION
  Report Type: 
  Country: None (occurrence: None)
  Receive Date: 20080626
  Receipt Date: 20080428
  Transmission Date: 20081010
  Serious: No
  Sender: FDA-Public Use
  Company Number: A0725044A

PATIENT
  Age: 34 Year
  Sex: Female

DRUGS (1)
  1. ALLI [Suspect]
     Dates: start: 20080414, end: 20080417

REACTIONS (2)
  - PRURITUS [None]
  - URTICARIA [None]
